FAERS Safety Report 10237902 (Version 1)
Quarter: 2014Q2

REPORT INFORMATION
  Report Type: Report from Study
  Country: US (occurrence: US)
  Receive Date: 20140616
  Receipt Date: 20140616
  Transmission Date: 20141212
  Serious: Yes (Hospitalization)
  Sender: FDA-Public Use
  Company Number: US-BIOGENIDEC-2014BI054888

PATIENT
  Age: 19 Year
  Sex: Male

DRUGS (1)
  1. TECFIDERA [Suspect]
     Indication: MULTIPLE SCLEROSIS
     Dates: start: 20131101

REACTIONS (2)
  - Multiple sclerosis relapse [Recovered/Resolved]
  - Gastroenteritis salmonella [Recovered/Resolved]
